FAERS Safety Report 11421741 (Version 1)
Quarter: 2015Q3

REPORT INFORMATION
  Report Type: Spontaneous
  Country: DE (occurrence: DE)
  Receive Date: 20150827
  Receipt Date: 20150827
  Transmission Date: 20151125
  Serious: Yes (Hospitalization, Other)
  Sender: FDA-Public Use
  Company Number: DE-AMGEN-DEUSP2015080517

PATIENT
  Age: 68 Year
  Sex: Male
  Weight: 59 kg

DRUGS (4)
  1. KYPROLIS [Suspect]
     Active Substance: CARFILZOMIB
     Indication: PLASMA CELL MYELOMA
     Dosage: 43.5 MG, ON DAY 1, 2, 8, 9, 15, +16, ONCE DAILY ON 29
     Route: 042
     Dates: start: 20140825
  2. DEXAMETHASONE. [Concomitant]
     Active Substance: DEXAMETHASONE
     Dosage: 8 MG, UNK
     Route: 048
  3. INTERFERON [Concomitant]
     Active Substance: INTERFERON
     Dosage: UNK
  4. ENDOXAN                            /00021101/ [Concomitant]
     Active Substance: CYCLOPHOSPHAMIDE
     Indication: PLASMA CELL LEUKAEMIA
     Dosage: UNK

REACTIONS (3)
  - Femoral neck fracture [Unknown]
  - Plasma cell leukaemia [Not Recovered/Not Resolved]
  - Bone marrow infiltration [Unknown]
